FAERS Safety Report 4634045-3 (Version None)
Quarter: 2005Q2

REPORT INFORMATION
  Report Type: 
  Country: None (occurrence: None)
  Receive Date: 20050413
  Receipt Date: 20050405
  Transmission Date: 20051028
  Serious: Yes (Other)
  Sender: FDA-Public Use
  Company Number: US-JNJFOC-20050401247

PATIENT
  Age: 46 Year
  Sex: Female

DRUGS (3)
  1. DURAGESIC-100 [Suspect]
     Route: 062
     Dates: start: 20040301, end: 20050328
  2. PAXIL CR [Concomitant]
     Indication: DEPRESSION
     Route: 049
  3. EFFEXOR XR [Concomitant]
     Indication: DEPRESSION
     Route: 049

REACTIONS (8)
  - AGITATION [None]
  - CONDITION AGGRAVATED [None]
  - DEPRESSION [None]
  - DEVICE FAILURE [None]
  - FIBROMYALGIA [None]
  - HYPERHIDROSIS [None]
  - NAUSEA [None]
  - SUICIDAL IDEATION [None]
